FAERS Safety Report 18100051 (Version 2)
Quarter: 2020Q3

REPORT INFORMATION
  Report Type: Spontaneous
  Country: BR (occurrence: BR)
  Receive Date: 20200731
  Receipt Date: 20200828
  Transmission Date: 20201103
  Serious: Yes (Other)
  Sender: FDA-Public Use
  Company Number: BR-009507513-2007BRA011251

PATIENT
  Age: 17 Year
  Sex: Female
  Weight: 69 kg

DRUGS (1)
  1. IMPLANON NXT [Suspect]
     Active Substance: ETONOGESTREL
     Indication: CONTRACEPTION
     Dosage: 1 IMPLANT
     Route: 059
     Dates: start: 20191112

REACTIONS (12)
  - Abdominal distension [Unknown]
  - Back pain [Unknown]
  - Implant site erythema [Recovered/Resolved]
  - Headache [Unknown]
  - Syncope [Unknown]
  - Limb discomfort [Unknown]
  - Menometrorrhagia [Unknown]
  - Uterine pain [Unknown]
  - Nausea [Unknown]
  - Implant site pain [Unknown]
  - Product administered to patient of inappropriate age [Unknown]
  - Pain [Unknown]

NARRATIVE: CASE EVENT DATE: 20191112
